FAERS Safety Report 9811945 (Version 2)
Quarter: 2015Q1

REPORT INFORMATION
  Report Type: Spontaneous
  Country: US (occurrence: US)
  Receive Date: 20140110
  Receipt Date: 20150217
  Transmission Date: 20150721
  Serious: Yes (Other)
  Sender: FDA-Public Use
  Company Number: US-SANOFI-AVENTIS-2013SA068593

PATIENT
  Age: 64 Year

DRUGS (4)
  1. PLAVIX [Suspect]
     Active Substance: CLOPIDOGREL BISULFATE
     Indication: ACUTE CORONARY SYNDROME
     Route: 065
     Dates: start: 20110813, end: 20111023
  2. PLAVIX [Suspect]
     Active Substance: CLOPIDOGREL BISULFATE
     Indication: STENT PLACEMENT
     Route: 065
     Dates: start: 20110813, end: 20111023
  3. ASPIRIN. [Concomitant]
     Active Substance: ASPIRIN
     Dates: start: 20110814
  4. HEPARIN [Concomitant]
     Active Substance: HEPARIN SODIUM
     Dates: start: 20000101

REACTIONS (7)
  - Gastrointestinal haemorrhage [Recovered/Resolved]
  - Ulcer haemorrhage [Unknown]
  - Speech disorder [Not Recovered/Not Resolved]
  - Visual acuity reduced [Unknown]
  - Haemorrhage [Unknown]
  - Tremor [Not Recovered/Not Resolved]
  - Hemiparesis [Not Recovered/Not Resolved]

NARRATIVE: CASE EVENT DATE: 200008
